FAERS Safety Report 26012608 (Version 2)
Quarter: 2025Q4

REPORT INFORMATION
  Report Type: Spontaneous
  Country: US (occurrence: US)
  Receive Date: 20251107
  Receipt Date: 20251118
  Transmission Date: 20260118
  Serious: Yes (Other)
  Sender: BAYER HEALTHCARE LLC
  Company Number: US-BAYER-2025A147344

PATIENT

DRUGS (2)
  1. AFRIN ORIGINAL NASAL [Suspect]
     Active Substance: OXYMETAZOLINE HYDROCHLORIDE
     Indication: Nasal septum deviation
     Dosage: MANY TIMES A DAY
  2. AFRIN ORIGINAL NASAL [Suspect]
     Active Substance: OXYMETAZOLINE HYDROCHLORIDE
     Indication: Illness

REACTIONS (7)
  - Drug dependence [None]
  - Swelling of nose [None]
  - Rhinalgia [None]
  - Product use in unapproved indication [None]
  - Dyspnoea [None]
  - Product use issue [None]
  - Blood pressure increased [None]
